FAERS Safety Report 5513999-7 (Version None)
Quarter: 2007Q4

REPORT INFORMATION
  Report Type: 
  Country: None (occurrence: None)
  Receive Date: 20071113
  Receipt Date: 20071102
  Transmission Date: 20080405
  Serious: Yes (Hospitalization)
  Sender: FDA-Public Use
  Company Number: US-AVENTIS-200618154GDDC

PATIENT
  Age: 57 Year
  Sex: Male
  Weight: 79.7 kg

DRUGS (8)
  1. AFLIBERCEPT [Suspect]
     Indication: METASTATIC GASTRIC CANCER
     Route: 042
     Dates: start: 20060725, end: 20060725
  2. DOCETAXEL [Suspect]
     Indication: METASTATIC GASTRIC CANCER
     Route: 042
     Dates: start: 20060725, end: 20060725
  3. CISPLATIN [Suspect]
     Indication: METASTATIC GASTRIC CANCER
     Route: 042
     Dates: start: 20060725, end: 20060725
  4. FLUOROURACIL [Suspect]
     Indication: METASTATIC GASTRIC CANCER
     Route: 042
     Dates: start: 20060725, end: 20060730
  5. CARAFATE [Concomitant]
     Indication: STOMATITIS
     Route: 048
     Dates: start: 20060729, end: 20060808
  6. STOMATOLOGICALS, MOUTH PREPARATIONS [Concomitant]
     Indication: STOMATITIS
     Dosage: DOSE QUANTITY: 2; DAILY DOSE UNIT: TABLESPOON
     Route: 048
     Dates: start: 20060729, end: 20060808
  7. SALT AND SODA [Concomitant]
     Dosage: DOSE QUANTITY: 2; DAILY DOSE UNIT: TABLESPOON
     Route: 048
     Dates: start: 20060725, end: 20060808
  8. DECADRON [Concomitant]
     Route: 048
     Dates: start: 20060724, end: 20060726

REACTIONS (13)
  - ABDOMINAL DISTENSION [None]
  - DEEP VEIN THROMBOSIS [None]
  - DEHYDRATION [None]
  - DIARRHOEA [None]
  - FATIGUE [None]
  - FEBRILE NEUTROPENIA [None]
  - MUSCULOSKELETAL CHEST PAIN [None]
  - NEUTROPENIA [None]
  - NEUTROPENIC COLITIS [None]
  - NEUTROPHIL COUNT [None]
  - OEDEMA PERIPHERAL [None]
  - PNEUMATOSIS INTESTINALIS [None]
  - PYREXIA [None]
